FAERS Safety Report 16227424 (Version 3)
Quarter: 2024Q1

REPORT INFORMATION
  Report Type: Spontaneous
  Country: AU (occurrence: AU)
  Receive Date: 20190423
  Receipt Date: 20240220
  Transmission Date: 20240410
  Serious: Yes (Hospitalization, Other)
  Sender: FDA-Public Use
  Company Number: AU-BOEHRINGERINGELHEIM-2019-BI-018098

PATIENT
  Age: 75 Year
  Sex: Female
  Weight: 42 kg

DRUGS (20)
  1. JARDIANCE [Suspect]
     Active Substance: EMPAGLIFLOZIN
     Indication: Product used for unknown indication
     Route: 065
     Dates: end: 201904
  2. TRULICITY [Suspect]
     Active Substance: DULAGLUTIDE
     Indication: Diabetes mellitus
     Dosage: STRENGTH 1.5 MG/0.5 ML
     Route: 065
     Dates: start: 20190403, end: 20190411
  3. METFORMIN HYDROCHLORIDE\SAXAGLIPTIN [Concomitant]
     Active Substance: METFORMIN HYDROCHLORIDE\SAXAGLIPTIN
     Indication: Product used for unknown indication
     Dosage: 5/1000 MG
     Route: 065
  4. LANTUS SOLOSTAR 100 U/ML, 3ML PEN [Concomitant]
     Indication: Diabetes mellitus
     Dosage: FORM STRENGTH: 100U/ML ?FREQUENCY: INJECT 10 UNITS IN THE MORNING VIA SUBCUTANEOUS INJECTION
     Route: 058
  5. Coloxyl and senna 50mg/8mg tablets [Concomitant]
     Indication: Constipation prophylaxis
     Dosage: FORM STRENGTH: 50MG/8MG;  ?UNTIL BOWELS OPEN THEN ADJUST DOSE AS PER BOWEL MOTIONS
     Route: 065
  6. Duro-K 600mg Sr tabs [Concomitant]
     Indication: Mineral supplementation
     Dosage: FREQUENCY TEXT: SWALLOW WHOLE 2 TABLETS TWICE A DAY WITH FOOD
     Route: 065
  7. PHOSPHATE SANDOZ 500MG EFFERVESCENT TABLETS [Concomitant]
     Indication: Supplementation therapy
     Dosage: FREQUENCY TEXT: DISSOLVE IN WATER AND DRINK 2 TABLETS TWICE A DAY
     Route: 048
  8. Motilium 10mg tablets [Concomitant]
     Indication: Gastrointestinal disorder
     Dosage: FREQUENCY TEXT: TAKE 1 TABLET TWICE A DAY AT LEAST HALF AN HOUR BEFORE FOOD.
     Route: 065
  9. Actonel Once-a-month 150mg tablets [Concomitant]
     Indication: Osteoporosis prophylaxis
     Dosage: ON THE 18TH OF EACH MONTH, AN HR BEFORE FOOD. REMAIN UPRIGHT FOR 30 MIN AFTERWARDS.
     Route: 065
  10. NEXIUM [Concomitant]
     Active Substance: ESOMEPRAZOLE MAGNESIUM
     Indication: Gastrooesophageal reflux disease
     Route: 065
  11. PROCHLORPERAZINE [Concomitant]
     Active Substance: PROCHLORPERAZINE
     Indication: Nausea
     Dosage: TAKE 1 TABLET 3 TIMES A DAY WHEN REQUIRED
     Route: 065
  12. ATORVASTATIN [Concomitant]
     Active Substance: ATORVASTATIN
     Indication: Ischaemic heart disease prophylaxis
     Route: 065
  13. ATORVASTATIN [Concomitant]
     Active Substance: ATORVASTATIN
     Indication: Cerebrovascular accident prophylaxis
  14. ATORVASTATIN [Concomitant]
     Active Substance: ATORVASTATIN
     Indication: Blood cholesterol abnormal
  15. Movicol 13.8g sachets [Concomitant]
     Indication: Constipation
     Dosage: SACHET; .? DISSOLVE EACH SACHET IN HALF A GLASS OF WATER.
     Route: 065
  16. NovoRapid Flex Pen 100U/ml [Concomitant]
     Indication: Diabetes mellitus
     Dosage: FORM STRENGTH; 100U/ML; ? SUBCUTANEOUS INJECTION
     Route: 058
  17. Carmellose 0.5%, 15ml eye drops [Concomitant]
     Indication: Dry eye
     Dosage: FORM STRENGTH: 0.5% IN 15ML ; ?DISCARD REMAINING CONTENTS 28 DAYS AFTER OPENING.
     Route: 061
  18. Hiprex 1g tablets [Concomitant]
     Indication: Cystitis
     Dosage: FREQUENCY TEXT: TAKE 1 TABLET THREE TIMES A DAY
     Route: 065
  19. DOMPERIDONE [Concomitant]
     Active Substance: DOMPERIDONE
     Indication: Gastrointestinal disorder
     Route: 065
  20. METFORMIN [Concomitant]
     Active Substance: METFORMIN HYDROCHLORIDE

REACTIONS (6)
  - Acute kidney injury [Unknown]
  - Euglycaemic diabetic ketoacidosis [Recovered/Resolved]
  - Sinus tachycardia [Unknown]
  - Vomiting [Unknown]
  - Nausea [Unknown]
  - Product use issue [Unknown]

NARRATIVE: CASE EVENT DATE: 20190401
